FAERS Safety Report 24264918 (Version 2)
Quarter: 2024Q3

REPORT INFORMATION
  Report Type: Spontaneous
  Country: BR (occurrence: BR)
  Receive Date: 20240829
  Receipt Date: 20240913
  Transmission Date: 20241016
  Serious: Yes (Hospitalization)
  Sender: BOEHRINGER INGELHEIM
  Company Number: BR-Komodo Health-a23aa000002ihRVAAY

PATIENT
  Age: 3 Year
  Sex: Male
  Weight: 17 kg

DRUGS (6)
  1. SPIRIVA RESPIMAT [Suspect]
     Active Substance: TIOTROPIUM BROMIDE
     Indication: Asthma
     Dosage: 2 PUFFS A DAY, VIA INHALATION, AT NIGHT, USING A SPACER
     Route: 055
     Dates: end: 202408
  2. SPIRIVA RESPIMAT [Suspect]
     Active Substance: TIOTROPIUM BROMIDE
     Dosage: HE CLARIFIED THAT HIS SON HAS BEEN TAKING THE MEDICATION SINCE THE BEGINNING OF 2024?SPIRIVA RESPIMA
     Dates: start: 2024
  3. SPIRIVA RESPIMAT [Suspect]
     Active Substance: TIOTROPIUM BROMIDE
     Dosage: 2 PUFFS IN A ROW ONCE A DAY IN THE EVENING
     Dates: start: 20240617
  4. SPIRIVA RESPIMAT [Suspect]
     Active Substance: TIOTROPIUM BROMIDE
     Dosage: 2 PUFFS IN A ROW ONCE A DAY IN THE EVENING
     Dates: start: 20240822
  5. SYMBICORT [Concomitant]
     Active Substance: BUDESONIDE\FORMOTEROL FUMARATE DIHYDRATE
     Indication: Asthma
     Dosage: FORM STRENGHT: ?6/200 MCG PER INHALATION?PUMP WITH 120 DOSES, 6/200 MCG PER INHALATION, BY RESPIRATO
  6. ALBUTEROL [Concomitant]
     Active Substance: ALBUTEROL
     Indication: Asthma
     Dosage: PUMP WITH 200 DOSES, 100 MCG PER DOSE, ONLY WHEN HE IS IN CRISIS

REACTIONS (5)
  - Asthmatic crisis [Unknown]
  - Asthmatic crisis [Unknown]
  - Off label use [Not Recovered/Not Resolved]
  - Wrong technique in product usage process [Not Recovered/Not Resolved]
  - Device occlusion [Not Recovered/Not Resolved]

NARRATIVE: CASE EVENT DATE: 20240101
